FAERS Safety Report 12209934 (Version 1)
Quarter: 2016Q1

REPORT INFORMATION
  Report Type: Spontaneous
  Country: JP (occurrence: JP)
  Receive Date: 20160325
  Receipt Date: 20160325
  Transmission Date: 20160526
  Serious: Yes (Other)
  Sender: FDA-Public Use
  Company Number: JP-ACCORD-039064

PATIENT
  Age: 1 Year
  Sex: Male

DRUGS (7)
  1. L-PAM [Suspect]
     Active Substance: MELPHALAN
     Indication: MEDULLOBLASTOMA
     Dosage: 90 MG/M2/DAY (DAYS -3, -2),
  2. VINCRISTINE [Concomitant]
     Active Substance: VINCRISTINE
     Indication: MEDULLOBLASTOMA
     Dosage: VCR, FOUR 21- DAY CYCLES (DAY 1)
  3. CYCLOPHOSPHAMIDE/CYCLOPHOSPHAMIDE MONOHYDRATE [Concomitant]
     Indication: MEDULLOBLASTOMA
     Dosage: CPA, FOUR 21- DAY CYCLES(DAYS 1, 3, 5)
  4. ETOPOSIDE. [Suspect]
     Active Substance: ETOPOSIDE
     Indication: MEDULLOBLASTOMA
     Dosage: VP-16 (ETOPOSIDE), 200 MG/M2/DAY (DAYS -7, -6, -5, -4)
  5. CISPLATIN. [Concomitant]
     Active Substance: CISPLATIN
     Indication: MEDULLOBLASTOMA
     Dosage: CDDP,FOUR 21- DAY CYCLES (DAYS 1-5)
  6. METHOTREXATE [Concomitant]
     Active Substance: METHOTREXATE
     Indication: MEDULLOBLASTOMA
     Dosage: FOUR 21- DAY CYCLES (DAY 1)
     Route: 024
  7. CARBOPLATIN. [Suspect]
     Active Substance: CARBOPLATIN
     Indication: MEDULLOBLASTOMA
     Dosage: CBDCA, FOUR 21- DAY CYCLES (DAY 4,5,6,7)

REACTIONS (1)
  - Haemangioma [Unknown]
